FAERS Safety Report 14890020 (Version 1)
Quarter: 2018Q2

REPORT INFORMATION
  Report Type: Spontaneous
  Country: ES (occurrence: ES)
  Receive Date: 20180514
  Receipt Date: 20180514
  Transmission Date: 20180711
  Serious: Yes (Other)
  Sender: FDA-Public Use
  Company Number: ES-AUROBINDO-AUR-APL-2018-025294

PATIENT
  Age: 50 Year
  Sex: Female

DRUGS (4)
  1. ZOLEDRONIC ACID [Suspect]
     Active Substance: ZOLEDRONIC ACID
     Indication: LUNG ADENOCARCINOMA STAGE IV
     Dosage: UNK
     Route: 065
     Dates: start: 201404
  2. CERITINIB [Suspect]
     Active Substance: CERITINIB
     Indication: PRODUCT USED FOR UNKNOWN INDICATION
     Dosage: UNK
     Route: 065
     Dates: start: 201605
  3. CRIZOTINIB [Suspect]
     Active Substance: CRIZOTINIB
     Dosage: UNK
     Route: 065
     Dates: start: 201510, end: 201604
  4. CRIZOTINIB [Suspect]
     Active Substance: CRIZOTINIB
     Indication: LUNG ADENOCARCINOMA STAGE IV
     Dosage: UNK
     Route: 065
     Dates: start: 201502, end: 201510

REACTIONS (10)
  - Lymphangiosis carcinomatosa [Unknown]
  - Hepatotoxicity [Unknown]
  - Osteonecrosis of jaw [Unknown]
  - Diplopia [Unknown]
  - Nephrogenic diabetes insipidus [Recovered/Resolved]
  - Central nervous system lesion [Unknown]
  - Metastases to lung [Unknown]
  - Metastases to central nervous system [Unknown]
  - Headache [Unknown]
  - Therapeutic response decreased [Unknown]

NARRATIVE: CASE EVENT DATE: 201404
